FAERS Safety Report 13225962 (Version 1)
Quarter: 2017Q1

REPORT INFORMATION
  Report Type: Spontaneous
  Country: FR (occurrence: FR)
  Receive Date: 20170213
  Receipt Date: 20170213
  Transmission Date: 20170428
  Serious: Yes (Death, Other)
  Sender: FDA-Public Use
  Company Number: FR-ELI_LILLY_AND_COMPANY-FR201702003752

PATIENT
  Age: 64 Year
  Sex: Female

DRUGS (1)
  1. GEMCITABINE HYDROCHLORIDE. [Suspect]
     Active Substance: GEMCITABINE HYDROCHLORIDE
     Indication: OVARIAN CANCER
     Dosage: UNK, UNKNOWN
     Route: 065

REACTIONS (4)
  - Thrombotic microangiopathy [Not Recovered/Not Resolved]
  - Septic shock [Fatal]
  - Renal failure [Unknown]
  - Shock haemorrhagic [Fatal]
